FAERS Safety Report 12844167 (Version 1)
Quarter: 2016Q4

REPORT INFORMATION
  Report Type: Spontaneous
  Country: US (occurrence: US)
  Receive Date: 20161012
  Receipt Date: 20161012
  Transmission Date: 20170207
  Serious: No
  Sender: FDA-Public Use
  Company Number: None

PATIENT
  Age: 34 Year
  Sex: Female

DRUGS (1)
  1. INVEGA [Suspect]
     Active Substance: PALIPERIDONE
     Indication: BIPOLAR DISORDER
     Dosage: ?          OTHER FREQUENCY:EVERY 3 WEEKS;?
     Route: 030
     Dates: start: 20160830, end: 20161011

REACTIONS (1)
  - Amnesia [None]

NARRATIVE: CASE EVENT DATE: 20161011
